FAERS Safety Report 23360438 (Version 2)
Quarter: 2024Q1

REPORT INFORMATION
  Report Type: Spontaneous
  Country: US (occurrence: US)
  Receive Date: 20240103
  Receipt Date: 20240315
  Transmission Date: 20240410
  Serious: Yes (Other)
  Sender: FDA-Public Use
  Company Number: US-ALEMBIC PHARMACUETICALS LIMITED-2023SCAL001275

PATIENT

DRUGS (3)
  1. METOLAZONE [Suspect]
     Active Substance: METOLAZONE
     Indication: Hypervolaemia
     Dosage: UNK
     Route: 065
  2. CHLORTHALIDONE [Suspect]
     Active Substance: CHLORTHALIDONE
     Indication: Hypervolaemia
     Dosage: UNK
     Route: 065
  3. BUMETANIDE [Suspect]
     Active Substance: BUMETANIDE
     Indication: Hypervolaemia
     Dosage: UNK
     Route: 065

REACTIONS (6)
  - Encephalopathy [Recovering/Resolving]
  - Asterixis [Recovering/Resolving]
  - Hypophagia [Recovering/Resolving]
  - Hyponatraemia [Recovering/Resolving]
  - Blood urea increased [Recovering/Resolving]
  - Blood creatinine increased [Recovering/Resolving]
